FAERS Safety Report 8077960-3 (Version None)
Quarter: 2012Q1

REPORT INFORMATION
  Report Type: 
  Country: None (occurrence: None)
  Receive Date: 20120127
  Receipt Date: 20110131
  Transmission Date: 20120608
  Serious: No
  Sender: FDA-Public Use
  Company Number: US-ABBOTT-11P-163-0695427-00

PATIENT
  Age: 21 Year
  Sex: Male

DRUGS (2)
  1. SYNTHROID [Concomitant]
     Indication: THYROID DISORDER
  2. HUMIRA [Suspect]
     Indication: PSORIASIS
     Dates: start: 20100801

REACTIONS (2)
  - PSORIASIS [None]
  - MOBILITY DECREASED [None]
